FAERS Safety Report 20149049 (Version 1)
Quarter: 2021Q4

REPORT INFORMATION
  Report Type: Spontaneous
  Country: DE (occurrence: DE)
  Receive Date: 20211204
  Receipt Date: 20211204
  Transmission Date: 20220303
  Serious: Yes (Other)
  Sender: FDA-Public Use
  Company Number: None

PATIENT
  Age: 28 Year
  Sex: Male
  Weight: 62 kg

DRUGS (1)
  1. AMOXICILLIN [Suspect]
     Active Substance: AMOXICILLIN
     Indication: Respiratory tract infection bacterial
     Dosage: 3000 MG, QD (1000 MG / 1-1-1)
     Route: 048
     Dates: start: 20211115, end: 20211119

REACTIONS (6)
  - Depressed level of consciousness [Recovering/Resolving]
  - Illusion [Recovering/Resolving]
  - Fall [Recovering/Resolving]
  - Coordination abnormal [Recovering/Resolving]
  - Mental status changes [Recovering/Resolving]
  - Disturbance in attention [Recovering/Resolving]

NARRATIVE: CASE EVENT DATE: 20211119
